FAERS Safety Report 12346812 (Version 1)
Quarter: 2016Q2

REPORT INFORMATION
  Report Type: Report from Study
  Country: US (occurrence: US)
  Receive Date: 20160509
  Receipt Date: 20160509
  Transmission Date: 20160815
  Serious: No
  Sender: FDA-Public Use
  Company Number: PHEH2015US009331

PATIENT
  Sex: Female

DRUGS (3)
  1. GLEEVEC [Suspect]
     Active Substance: IMATINIB MESYLATE
     Indication: PRODUCT USED FOR UNKNOWN INDICATION
     Dosage: FOR 5 TO 6 MONTHS
     Route: 065
     Dates: start: 201303
  2. EYE DROPS//NAPHAZOLINE HYDROCHLORIDE [Concomitant]
     Indication: IRITIS
     Route: 065
  3. MYCOPHENOLATE [Concomitant]
     Active Substance: MYCOPHENOLIC ACID
     Indication: IRITIS
     Route: 065

REACTIONS (2)
  - Generalised oedema [Unknown]
  - Rash generalised [Unknown]
